FAERS Safety Report 7532941-0 (Version None)
Quarter: 2011Q2

REPORT INFORMATION
  Report Type: 
  Country: None (occurrence: None)
  Receive Date: 20110601
  Receipt Date: 20110523
  Transmission Date: 20111010
  Serious: Yes (Death, Hospitalization)
  Sender: FDA-Public Use
  Company Number: 2011SP023923

PATIENT
  Age: 51 Year
  Sex: Male

DRUGS (1)
  1. METHYLPREDNISOLONE SODIUM SUCCINATE [Suspect]
     Indication: HEPATITIS ALCOHOLIC
     Dosage: 40 MG; QD; IV
     Route: 042

REACTIONS (7)
  - THROMBOCYTOPENIA [None]
  - PLEURAL EFFUSION [None]
  - DISSEMINATED INTRAVASCULAR COAGULATION [None]
  - PYREXIA [None]
  - LUNG NEOPLASM [None]
  - ACUTE RESPIRATORY FAILURE [None]
  - SEPTIC SHOCK [None]
